FAERS Safety Report 8906900 (Version 1)
Quarter: 2012Q4

REPORT INFORMATION
  Report Type: 
  Country: FR (occurrence: FR)
  Receive Date: 20121113
  Receipt Date: 20121113
  Transmission Date: 20130627
  Serious: Yes (Other)
  Sender: FDA-Public Use
  Company Number: FR-VERTEX PHARMACEUTICAL INC.-2012-024445

PATIENT
  Age: 68 Year
  Sex: Female

DRUGS (3)
  1. INCIVO [Suspect]
     Indication: CHRONIC HEPATITIS C
     Dosage: Dosage Form: Tablet
     Route: 048
     Dates: start: 20120410, end: 20120608
  2. PEGASYS [Suspect]
     Indication: CHRONIC HEPATITIS C
     Dosage: Dosage Form: Unspecified
     Route: 058
     Dates: start: 20120410, end: 20120608
  3. COPEGUS [Suspect]
     Indication: CHRONIC HEPATITIS C
     Dosage: Dosage Form: Tablet, 3 tablets on morning and on evening.
     Route: 048
     Dates: start: 20120410, end: 20120608

REACTIONS (2)
  - Visual impairment [Unknown]
  - Glossitis [Recovered/Resolved]
